FAERS Safety Report 4423160-5 (Version None)
Quarter: 2004Q3

REPORT INFORMATION
  Report Type: 
  Country: None (occurrence: None)
  Receive Date: 20040811
  Receipt Date: 20040804
  Transmission Date: 20050211
  Serious: Yes (Hospitalization)
  Sender: FDA-Public Use
  Company Number: FR-MERCK-0408FRA00010

PATIENT
  Age: 71 Year
  Sex: Female

DRUGS (4)
  1. DIACEREIN [Suspect]
     Indication: OSTEOARTHRITIS
     Route: 048
     Dates: end: 20040508
  2. PINDOLOL [Concomitant]
     Indication: HYPERTENSION
     Route: 048
  3. ZOCOR [Suspect]
     Indication: HYPERCHOLESTEROLAEMIA
     Route: 048
  4. TRIMETAZIDINE [Concomitant]
     Indication: ANGINA PECTORIS
     Route: 048

REACTIONS (2)
  - ABDOMINAL PAIN [None]
  - HAEMATEMESIS [None]
